FAERS Safety Report 9280497 (Version 1)
Quarter: 2013Q2

REPORT INFORMATION
  Report Type: Spontaneous
  Country: US (occurrence: None)
  Receive Date: 20130507
  Receipt Date: 20130507
  Transmission Date: 20140414
  Serious: Yes (Hospitalization)
  Sender: FDA-Public Use
  Company Number: None

PATIENT
  Age: 29 Year
  Sex: Male
  Weight: 90.9 kg

DRUGS (2)
  1. TIZANIDINE [Suspect]
     Indication: PAIN
     Route: 048
     Dates: start: 20121005, end: 20130218
  2. QUETIAPINE [Suspect]
     Route: 048
     Dates: start: 20120914

REACTIONS (5)
  - Overdose [None]
  - Confusional state [None]
  - Sedation [None]
  - Nausea [None]
  - Vomiting [None]
